FAERS Safety Report 4842051-9 (Version None)
Quarter: 2005Q4

REPORT INFORMATION
  Report Type: 
  Country: None (occurrence: None)
  Receive Date: 20051130
  Receipt Date: 20051121
  Transmission Date: 20060501
  Serious: Yes (Death, Hospitalization)
  Sender: FDA-Public Use
  Company Number: PHEH2005US12768

PATIENT
  Age: 81 Year
  Sex: Male

DRUGS (16)
  1. ZOMETA [Suspect]
     Indication: MULTIPLE MYELOMA
     Dates: start: 20050824, end: 20050824
  2. ATENOLOL [Concomitant]
     Dosage: 50 MG, QD
  3. LOVENOX [Concomitant]
     Dosage: 600 MG, Q12H
  4. LOVENOX [Concomitant]
     Dosage: 600 MG, Q12H
  5. LOVENOX [Concomitant]
     Dosage: 600 MG, Q12H
  6. TYLENOL W/ CODEINE NO. 3 [Concomitant]
     Indication: PAIN
  7. LIDODERM [Concomitant]
  8. MIACALCIN [Concomitant]
  9. COLACE [Concomitant]
  10. METAMUCIL [Concomitant]
  11. DULCOLAX [Concomitant]
  12. PROCRIT [Concomitant]
     Dosage: UNK, QW
     Dates: start: 20050902, end: 20050902
  13. THALIDOMID [Suspect]
     Indication: MULTIPLE MYELOMA
     Dosage: 200 MG, QD
     Route: 048
     Dates: start: 20050825, end: 20050901
  14. THALIDOMID [Suspect]
     Dosage: 100 MG, QD
     Route: 048
     Dates: start: 20050902, end: 20050901
  15. THALIDOMID [Suspect]
     Dosage: 100 MG, QD
     Route: 048
     Dates: start: 20050818, end: 20050824
  16. DECADRON [Suspect]
     Indication: MULTIPLE MYELOMA
     Dosage: PULSED DOSES
     Dates: start: 20050818, end: 20050101

REACTIONS (7)
  - BONE PAIN [None]
  - DRUG INTOLERANCE [None]
  - DYSPNOEA [None]
  - HAEMOGLOBIN DECREASED [None]
  - MALIGNANT NEOPLASM PROGRESSION [None]
  - MULTIPLE MYELOMA [None]
  - PULMONARY EMBOLISM [None]
